FAERS Safety Report 5885153-0 (Version None)
Quarter: 2008Q3

REPORT INFORMATION
  Report Type: 
  Country: None (occurrence: None)
  Receive Date: 20080916
  Receipt Date: 20080912
  Transmission Date: 20090109
  Serious: Yes (Life-Threatening)
  Sender: FDA-Public Use
  Company Number: FR-ASTRAZENECA-2008CG01109

PATIENT
  Age: 13514 Day
  Sex: Male
  Weight: 75 kg

DRUGS (10)
  1. SEROQUEL [Suspect]
     Indication: PSYCHOTIC DISORDER
     Route: 048
     Dates: start: 20070101, end: 20080605
  2. ETUMINE [Suspect]
     Indication: AGITATION
     Dates: start: 20070101, end: 20080530
  3. DOMINAL [Suspect]
     Indication: AGITATION
     Dates: start: 20070101, end: 20080530
  4. NOZINAN [Concomitant]
     Indication: AGITATION
     Dates: start: 20070101, end: 20080611
  5. LARGACTIL [Concomitant]
     Indication: AGITATION
     Dates: start: 20080530, end: 20080611
  6. DEPAKENE [Concomitant]
     Indication: EPILEPSY
  7. ARTANE [Concomitant]
     Indication: TREMOR
     Dates: start: 20070101, end: 20080611
  8. DIPIPERON [Concomitant]
  9. XANAX [Concomitant]
  10. CLOPIXOL [Concomitant]
     Dates: start: 20080602, end: 20080606

REACTIONS (4)
  - EPILEPSY [None]
  - GENERAL PHYSICAL HEALTH DETERIORATION [None]
  - PYRAMIDAL TRACT SYNDROME [None]
  - VOMITING [None]
